FAERS Safety Report 6607943-9 (Version None)
Quarter: 2010Q1

REPORT INFORMATION
  Report Type: 
  Country: None (occurrence: None)
  Receive Date: 20100225
  Receipt Date: 20100225
  Transmission Date: 20100710
  Serious: Yes (Hospitalization)
  Sender: FDA-Public Use
  Company Number: None

PATIENT
  Age: 63 Year
  Sex: Male
  Weight: 80.74 kg

DRUGS (1)
  1. LISINOPRIL [Suspect]
     Dosage: 80 MG EVERY DAY PO
     Route: 048
     Dates: start: 20010105, end: 20090301

REACTIONS (2)
  - ANAPHYLACTIC REACTION [None]
  - ANGIOEDEMA [None]
